FAERS Safety Report 15285054 (Version 1)
Quarter: 2018Q3

REPORT INFORMATION
  Report Type: Spontaneous
  Country: US (occurrence: US)
  Receive Date: 20180816
  Receipt Date: 20180816
  Transmission Date: 20181010
  Serious: No
  Sender: FDA-Public Use
  Company Number: US-ENDO PHARMACEUTICALS INC-2018-016251

PATIENT
  Age: 58 Year
  Sex: Male

DRUGS (1)
  1. OXYCODONE/ACETAMINOPHEN TABLETS 10MG/325MG [Suspect]
     Active Substance: ACETAMINOPHEN\OXYCODONE HYDROCHLORIDE
     Indication: PAIN
     Dosage: UNK UNK, EVERY 4?6 HOURS AS NEEDED FOR PAIN
     Route: 065

REACTIONS (2)
  - Treatment noncompliance [Unknown]
  - Throat tightness [Unknown]
